FAERS Safety Report 18659348 (Version 1)
Quarter: 2020Q4

REPORT INFORMATION
  Report Type: Report from Study
  Country: DE (occurrence: DE)
  Receive Date: 20201224
  Receipt Date: 20201224
  Transmission Date: 20210114
  Serious: Yes (Other)
  Sender: FDA-Public Use
  Company Number: NVSC2020DE300631

PATIENT
  Sex: Female
  Weight: 64.2 kg

DRUGS (9)
  1. DEKRISTOL [Concomitant]
     Active Substance: CHOLECALCIFEROL
     Indication: VITAMIN SUPPLEMENTATION
     Dosage: 2000 IU, QW
     Route: 048
     Dates: start: 20180208
  2. TRAMADOL. [Concomitant]
     Active Substance: TRAMADOL
     Indication: NEURALGIA
     Dosage: 100 MG/ML 20-40 GTT (AS NEEDED)
     Route: 065
     Dates: start: 20180309
  3. IBUPROFEN. [Concomitant]
     Active Substance: IBUPROFEN
     Indication: PAIN
     Dosage: 600 MG, PRN
     Route: 048
     Dates: start: 20170926
  4. FAMPYRA [Concomitant]
     Active Substance: DALFAMPRIDINE
     Indication: GAIT INABILITY
     Dosage: 10 MG
     Route: 065
     Dates: start: 20180208
  5. GILENYA [Suspect]
     Active Substance: FINGOLIMOD HYDROCHLORIDE
     Indication: MULTIPLE SCLEROSIS
     Dosage: 0.5 MG, QD
     Route: 048
     Dates: start: 20171120
  6. GILENYA [Suspect]
     Active Substance: FINGOLIMOD HYDROCHLORIDE
     Dosage: 0.5 MG, QOD (EVERY OTHER DAY)
     Route: 048
  7. TIMONIL [Concomitant]
     Active Substance: CARBAMAZEPINE
     Indication: PAROXYSMAL EXTREME PAIN DISORDER
     Dosage: 5 ML, PRN
     Route: 048
     Dates: start: 20180412
  8. TIMONIL [Concomitant]
     Active Substance: CARBAMAZEPINE
     Dosage: 0.5 DF, QD (A HALF DOSE OF 300)
     Route: 048
     Dates: start: 20180412
  9. AMITRIPTYLINE [Concomitant]
     Active Substance: AMITRIPTYLINE
     Indication: PAIN
     Dosage: 25 MG
     Route: 048
     Dates: start: 20170926

REACTIONS (2)
  - Leukopenia [Not Recovered/Not Resolved]
  - Off label use [Unknown]

NARRATIVE: CASE EVENT DATE: 20200526
